FAERS Safety Report 14408607 (Version 4)
Quarter: 2018Q4

REPORT INFORMATION
  Report Type: Spontaneous
  Country: CO (occurrence: CO)
  Receive Date: 20180118
  Receipt Date: 20181116
  Transmission Date: 20190204
  Serious: Yes (Other)
  Sender: FDA-Public Use
  Company Number: CO-AMGEN-COLSP2016140690

PATIENT
  Age: 53 Year
  Sex: Female

DRUGS (4)
  1. ENBREL [Suspect]
     Active Substance: ETANERCEPT
     Dosage: 50 MG, CYCLIC (EVERY 20 DAYS)
     Route: 065
  2. ENBREL [Suspect]
     Active Substance: ETANERCEPT
     Dosage: UNK, CYCLIC (EVERY 16 DAYS)
     Route: 065
     Dates: start: 2015
  3. ENBREL [Suspect]
     Active Substance: ETANERCEPT
     Dosage: UNK, CYCLIC (EVERY 8 DAYS)
     Route: 065
     Dates: start: 201711
  4. ENBREL [Suspect]
     Active Substance: ETANERCEPT
     Indication: RHEUMATOID ARTHRITIS
     Dosage: 50 MG, WEEKLY
     Route: 058
     Dates: start: 2014, end: 2015

REACTIONS (14)
  - Nausea [Recovered/Resolved]
  - Somnolence [Recovered/Resolved]
  - Drug ineffective [Unknown]
  - Arrhythmia [Unknown]
  - Dizziness [Recovered/Resolved]
  - Hypoaesthesia [Not Recovered/Not Resolved]
  - Contusion [Not Recovered/Not Resolved]
  - Product use issue [Unknown]
  - Rash [Recovered/Resolved]
  - Paraesthesia [Unknown]
  - Cardiovascular disorder [Unknown]
  - Hypersensitivity [Recovered/Resolved]
  - Pruritus [Recovered/Resolved]
  - Head discomfort [Unknown]

NARRATIVE: CASE EVENT DATE: 2014
